FAERS Safety Report 24531435 (Version 3)
Quarter: 2025Q3

REPORT INFORMATION
  Report Type: Spontaneous
  Country: AU (occurrence: AU)
  Receive Date: 20241022
  Receipt Date: 20250803
  Transmission Date: 20251021
  Serious: Yes (Life-Threatening, Hospitalization, Other)
  Sender: ALEXION PHARMACEUTICALS
  Company Number: AU-ASTRAZENECA-202410OCE008867AU

PATIENT
  Age: 54 Year
  Sex: Male

DRUGS (2)
  1. ANDEXXA [Suspect]
     Active Substance: ANDEXANET ALFA
     Indication: Haemorrhage intracranial
     Route: 065
  2. ANDEXXA [Suspect]
     Active Substance: ANDEXANET ALFA
     Route: 065

REACTIONS (1)
  - Lower respiratory tract infection [Unknown]
